FAERS Safety Report 5104108-7 (Version None)
Quarter: 2006Q3

REPORT INFORMATION
  Report Type: 
  Country: None (occurrence: None)
  Receive Date: 20060911
  Receipt Date: 20060828
  Transmission Date: 20061208
  Serious: Yes (Hospitalization, Other)
  Sender: FDA-Public Use
  Company Number: TAP2006Q01519

PATIENT
  Age: 76 Year
  Sex: Male

DRUGS (6)
  1. LUPRON DEPOT-4 [Suspect]
     Indication: PROSTATE CANCER
     Dosage: 30 MG (30 MG, 1 IN 4 M) INTRAMUSCULAR
     Route: 030
     Dates: start: 20060112
  2. CHLORPROMAZINE [Suspect]
  3. FERROUS SULFATE TAB [Concomitant]
  4. LIPITOR [Concomitant]
  5. APO-AMIZIDE (MODURETIC) [Concomitant]
  6. NONV-DIVALPROEX (VALPROATE SEMISODIUM) [Concomitant]

REACTIONS (4)
  - ANOREXIA [None]
  - HEAT STROKE [None]
  - RENAL FAILURE [None]
  - WEIGHT DECREASED [None]
